FAERS Safety Report 20721193 (Version 2)
Quarter: 2022Q4

REPORT INFORMATION
  Report Type: Spontaneous
  Country: JP (occurrence: JP)
  Receive Date: 20220418
  Receipt Date: 20221018
  Transmission Date: 20230113
  Serious: Yes (Other)
  Sender: FDA-Public Use
  Company Number: JP-ELI_LILLY_AND_COMPANY-JP202007003900

PATIENT
  Age: 61 Year
  Sex: Female
  Weight: 47.5 kg

DRUGS (63)
  1. ADCIRCA [Suspect]
     Active Substance: TADALAFIL
     Indication: Pulmonary hypertension
     Dosage: 40 MG, DAILY
     Route: 065
     Dates: end: 20200705
  2. UPTRAVI [Suspect]
     Active Substance: SELEXIPAG
     Indication: Pulmonary arterial hypertension
     Dosage: 0.4 MG, DAILY (0.2 MG BID)
     Route: 048
     Dates: start: 20190725, end: 20190729
  3. UPTRAVI [Suspect]
     Active Substance: SELEXIPAG
     Dosage: 0.8 MG, DAILY (0.4 MG BID)
     Route: 048
     Dates: start: 20190730, end: 20190807
  4. UPTRAVI [Suspect]
     Active Substance: SELEXIPAG
     Dosage: 0.4 MG, DAILY (0.2 MG BID)
     Route: 048
     Dates: start: 20190808, end: 20200705
  5. ALFACALCIDOL [Suspect]
     Active Substance: ALFACALCIDOL
     Indication: Hypocalcaemia
     Dosage: 25 UG, UNKNOWN
     Route: 048
     Dates: start: 20190730, end: 20190801
  6. ALFACALCIDOL [Suspect]
     Active Substance: ALFACALCIDOL
     Dosage: 1 UG, DAILY
     Route: 048
     Dates: start: 20190802, end: 20190805
  7. GIMERACIL\OTERACIL\TEGAFUR [Suspect]
     Active Substance: GIMERACIL\OTERACIL\TEGAFUR
     Indication: Product used for unknown indication
     Dosage: 4 DOSAGE FORM, DAILY
     Route: 048
     Dates: end: 20190802
  8. GIMERACIL\OTERACIL\TEGAFUR [Suspect]
     Active Substance: GIMERACIL\OTERACIL\TEGAFUR
     Dosage: 4 DOSAGE FORM, DAILY
     Route: 048
     Dates: start: 20190816
  9. GIMERACIL\OTERACIL\TEGAFUR [Suspect]
     Active Substance: GIMERACIL\OTERACIL\TEGAFUR
     Dosage: 80 MG, DAILY
     Route: 048
     Dates: start: 20190822, end: 20200618
  10. TAPENTADOL HYDROCHLORIDE [Suspect]
     Active Substance: TAPENTADOL HYDROCHLORIDE
     Indication: Cancer pain
     Dosage: 50 MG, DAILY
     Route: 048
     Dates: start: 20200501, end: 20200605
  11. TAPENTADOL HYDROCHLORIDE [Suspect]
     Active Substance: TAPENTADOL HYDROCHLORIDE
     Dosage: 50 MG, DAILY
     Route: 048
     Dates: start: 20200626, end: 20200628
  12. TAPENTADOL HYDROCHLORIDE [Suspect]
     Active Substance: TAPENTADOL HYDROCHLORIDE
     Dosage: 25 MG, DAILY
     Route: 048
     Dates: start: 20200629, end: 20200705
  13. OPSUMIT [Concomitant]
     Active Substance: MACITENTAN
     Indication: Pulmonary arterial hypertension
     Dosage: 10 MG, UNKNOWN
     Route: 065
     Dates: end: 20200705
  14. EDOXABAN TOSYLATE [Concomitant]
     Active Substance: EDOXABAN TOSYLATE
     Indication: Product used for unknown indication
     Dosage: 30 MG, UNKNOWN
     Route: 065
     Dates: start: 20190808
  15. ZOLPIDEM TARTRATE [Concomitant]
     Active Substance: ZOLPIDEM TARTRATE
     Indication: Product used for unknown indication
     Dosage: 5 MG, UNKNOWN
     Route: 065
  16. SPIRONOLACTONE [Concomitant]
     Active Substance: SPIRONOLACTONE
     Indication: Cardiac failure
     Dosage: 25 MG, UNKNOWN
     Route: 065
     Dates: start: 20190807, end: 20190807
  17. LOXOPROFEN [Concomitant]
     Active Substance: LOXOPROFEN
     Indication: Cancer pain
     Dosage: UNK
  18. LOXOPROFEN [Concomitant]
     Active Substance: LOXOPROFEN
     Dosage: 180 MG, DAILY
     Dates: start: 20200529, end: 20200701
  19. DOBUTAMINE HYDROCHLORIDE [Concomitant]
     Active Substance: DOBUTAMINE HYDROCHLORIDE
     Indication: Cardiac failure
     Dosage: 16.8 ML
     Dates: start: 20190729, end: 20190729
  20. CALCIUM GLUCONATE [Concomitant]
     Active Substance: CALCIUM GLUCONATE
     Indication: Hypocalcaemia
     Dosage: UNK
     Dates: start: 20190729, end: 20190802
  21. CYANOCOBALAMIN\PYRIDOXINE HYDROCHLORIDE\THIAMINE [Concomitant]
     Active Substance: CYANOCOBALAMIN\PYRIDOXINE HYDROCHLORIDE\THIAMINE
     Indication: Pyrexia
     Dosage: 1 DOSAGE FORM, UNKNOWN
     Route: 065
     Dates: start: 20190806, end: 20190809
  22. CYANOCOBALAMIN\PYRIDOXINE HYDROCHLORIDE\THIAMINE [Concomitant]
     Active Substance: CYANOCOBALAMIN\PYRIDOXINE HYDROCHLORIDE\THIAMINE
     Indication: Gastric cancer
     Dosage: 1 DOSAGE FORM, UNKNOWN
     Route: 065
     Dates: start: 20200705, end: 20200710
  23. ASCORBIC ACID [Concomitant]
     Active Substance: ASCORBIC ACID
     Indication: Pyrexia
     Dosage: 500 MG
     Dates: start: 20190806, end: 20190809
  24. ASCORBIC ACID [Concomitant]
     Active Substance: ASCORBIC ACID
     Indication: Gastric cancer
     Dosage: 500 MG
     Dates: start: 20200705, end: 20200710
  25. ASCORBIC ACID [Concomitant]
     Active Substance: ASCORBIC ACID
     Indication: Urinary tract infection
  26. ACELO [Concomitant]
     Indication: Urinary tract infection
     Dosage: UNK
     Dates: start: 20190804, end: 20190805
  27. CEFTRIAXONE SODIUM [Concomitant]
     Active Substance: CEFTRIAXONE SODIUM
     Indication: Urinary tract infection
     Dosage: 2 G, DAILY
     Dates: start: 20190805, end: 20190806
  28. KCL CORRECTIVE [Concomitant]
     Indication: Pyrexia
     Dosage: 20 ML
     Dates: start: 20190808, end: 20190809
  29. DECADRON [Concomitant]
     Active Substance: DEXAMETHASONE
     Indication: Product used for unknown indication
     Dosage: UNK, UNKNOWN
     Dates: start: 20190816, end: 20200110
  30. ALOXI [Concomitant]
     Active Substance: PALONOSETRON HYDROCHLORIDE
     Indication: Product used for unknown indication
     Dosage: UNK UNK, UNKNOWN
     Dates: start: 20190816
  31. ALOXI [Concomitant]
     Active Substance: PALONOSETRON HYDROCHLORIDE
     Dosage: 0.75 MG, DAILY
     Dates: start: 20191206, end: 20200605
  32. OXALIPLATIN [Concomitant]
     Active Substance: OXALIPLATIN
     Indication: Product used for unknown indication
     Dosage: UNK UNK, UNKNOWN
     Dates: start: 20190816, end: 20191108
  33. OXALIPLATIN [Concomitant]
     Active Substance: OXALIPLATIN
     Dosage: UNK
     Dates: start: 20191206, end: 20200605
  34. AZOSEMIDE [Concomitant]
     Active Substance: AZOSEMIDE
     Indication: Cardiac failure
     Dosage: 30 MG
     Dates: start: 20190816, end: 20200705
  35. LOXOPROFEN SODIUM [Concomitant]
     Active Substance: LOXOPROFEN SODIUM
     Indication: Cancer pain
     Dosage: 100 MG, DAILY
     Dates: start: 20190819
  36. LOXOPROFEN SODIUM [Concomitant]
     Active Substance: LOXOPROFEN SODIUM
     Dosage: UNK UNK, PRN
     Dates: start: 20200521, end: 20200701
  37. SODIUM FERROUS CITRATE [Concomitant]
     Active Substance: SODIUM FERROUS CITRATE
     Indication: Product used for unknown indication
     Dosage: 100 MG
     Dates: start: 20191011, end: 20200205
  38. MOSAPRIDE CITRATE [Concomitant]
     Active Substance: MOSAPRIDE CITRATE
     Indication: Prophylaxis
     Dosage: 15 MG, UNKNOWN
     Route: 065
     Dates: start: 20191011, end: 20191205
  39. MOSAPRIDE CITRATE [Concomitant]
     Active Substance: MOSAPRIDE CITRATE
     Dosage: 10 MG, UNKNOWN
     Route: 065
     Dates: start: 20191206, end: 20200705
  40. LOPERAMIDE HYDROCHLORIDE [Concomitant]
     Active Substance: LOPERAMIDE HYDROCHLORIDE
     Indication: Diarrhoea
     Dosage: UNK
     Dates: start: 20190805
  41. WARFARIN [Concomitant]
     Active Substance: WARFARIN
     Indication: Product used for unknown indication
     Dosage: UNK
     Dates: start: 20190809, end: 20200704
  42. KETOPROFEN [Concomitant]
     Active Substance: KETOPROFEN
     Indication: Product used for unknown indication
     Dosage: 20 MG
  43. BROTIZOLAM [Concomitant]
     Active Substance: BROTIZOLAM
     Indication: Product used for unknown indication
     Dosage: 0.25 MG
  44. K SUPPLY [POTASSIUM CHLORIDE] [Concomitant]
     Indication: Product used for unknown indication
     Dosage: UNK
     Dates: start: 20190804, end: 20190807
  45. CALCIUM LACTATE [Concomitant]
     Active Substance: CALCIUM LACTATE
     Indication: Hypocalcaemia
     Dosage: 2000 MG, UNKNOWN
     Route: 065
     Dates: start: 20190730, end: 20190801
  46. FUROSEMIDE [Concomitant]
     Active Substance: FUROSEMIDE
     Indication: Cardiac failure
     Dosage: 20 MG, DAILY
     Route: 065
     Dates: end: 20190726
  47. FUROSEMIDE [Concomitant]
     Active Substance: FUROSEMIDE
     Dosage: 40 MG, DAILY
     Route: 065
     Dates: start: 20190727, end: 20190802
  48. TRAMADOL [Concomitant]
     Active Substance: TRAMADOL
     Indication: Cancer pain
     Dosage: 100 MG, PRN
     Dates: start: 20200605, end: 20200626
  49. CALONAL [Concomitant]
     Active Substance: ACETAMINOPHEN
     Indication: Cancer pain
     Dosage: 300 MG, PRN
     Dates: start: 20200605, end: 20200705
  50. PROCHLORPERAZINE MALEATE [Concomitant]
     Active Substance: PROCHLORPERAZINE MALEATE
     Indication: Cancer pain
     Dosage: 10 MG, DAILY
     Dates: start: 20200626, end: 20200705
  51. OXYCODONE HYDROCHLORIDE [Concomitant]
     Active Substance: OXYCODONE HYDROCHLORIDE
     Indication: Cancer pain
     Dosage: UNK, PRN
     Dates: start: 20200627, end: 20200705
  52. ESFLURBIPROFEN\HERBALS [Concomitant]
     Active Substance: ESFLURBIPROFEN\HERBALS
     Indication: Cancer pain
     Dosage: UNK UNK, UNKNOWN
     Dates: start: 20200701, end: 20200705
  53. OXYCODONE [Concomitant]
     Active Substance: OXYCODONE
     Indication: Cancer pain
     Dosage: 20 MG, DAILY
     Dates: start: 20200705, end: 20200710
  54. FLURBIPROFEN AXETIL [Concomitant]
     Active Substance: FLURBIPROFEN AXETIL
     Indication: Cancer pain
     Dosage: 25 MG, DAILY
     Dates: start: 20200708
  55. ACETAMINOPHEN [Concomitant]
     Active Substance: ACETAMINOPHEN
     Indication: Urinary tract infection
     Dosage: UNK UNK, UNKNOWN
     Dates: start: 20190804, end: 20190805
  56. ACETAMINOPHEN [Concomitant]
     Active Substance: ACETAMINOPHEN
     Dosage: 2400 MG, UNKNOWN
     Dates: start: 20200706, end: 20200710
  57. BILASTINE [Concomitant]
     Active Substance: BILASTINE
     Indication: Nasal congestion
     Dosage: 20 MG
     Dates: start: 20200207, end: 20200401
  58. RIKKUNSHITO [ATRACTYLODES LANCEA RHIZOME;CITR [Concomitant]
     Indication: Nasal congestion
     Dosage: 5 G
     Dates: start: 20200207, end: 20200318
  59. ACOTIAMIDE HYDROCHLORIDE [Concomitant]
     Active Substance: ACOTIAMIDE HYDROCHLORIDE
     Indication: Nasal congestion
     Dosage: 200 MG
     Dates: start: 20200501, end: 20200528
  60. GASCON [DIMETICONE] [Concomitant]
     Indication: Product used for unknown indication
     Dosage: 240 MG
     Dates: start: 20200529, end: 20200605
  61. OMEPRAZOLE SODIUM [Concomitant]
     Active Substance: OMEPRAZOLE SODIUM
     Indication: Prophylaxis
     Dosage: 40 MG
     Dates: start: 20200705, end: 20200710
  62. PIPERACILLIN SODIUM [Concomitant]
     Active Substance: PIPERACILLIN SODIUM
     Indication: Product used for unknown indication
     Dosage: 4 MG
     Dates: start: 20200708, end: 20200710
  63. SOLU-CORTEF [Concomitant]
     Active Substance: HYDROCORTISONE SODIUM SUCCINATE
     Indication: Cancer pain
     Dosage: 300 MG
     Dates: start: 20200709, end: 20200710

REACTIONS (9)
  - Anaemia [Recovered/Resolved]
  - Hypocalcaemia [Recovered/Resolved]
  - Toxic skin eruption [Recovered/Resolved]
  - Diarrhoea [Recovered/Resolved]
  - Urinary tract infection [Recovered/Resolved]
  - Diarrhoea [Recovered/Resolved]
  - Constipation [Recovered/Resolved]
  - Pollakiuria [Recovered/Resolved]
  - Nausea [Recovered/Resolved]

NARRATIVE: CASE EVENT DATE: 20190726
